FAERS Safety Report 7417475-6 (Version None)
Quarter: 2011Q2

REPORT INFORMATION
  Report Type: 
  Country: None (occurrence: None)
  Receive Date: 20110415
  Receipt Date: 20110413
  Transmission Date: 20111010
  Serious: Yes (Other)
  Sender: FDA-Public Use
  Company Number: AU-PFIZER INC-2011081552

PATIENT
  Age: 36 Year
  Sex: Male

DRUGS (1)
  1. ZELDOX [Suspect]
     Indication: BIPOLAR DISORDER
     Dosage: UNK

REACTIONS (4)
  - METABOLIC FUNCTION TEST ABNORMAL [None]
  - BLOOD TRIGLYCERIDES ABNORMAL [None]
  - BLOOD CHOLESTEROL INCREASED [None]
  - GLYCOSYLATED HAEMOGLOBIN INCREASED [None]
